FAERS Safety Report 7888031-0 (Version None)
Quarter: 2011Q4

REPORT INFORMATION
  Report Type: 
  Country: None (occurrence: None)
  Receive Date: 20111103
  Receipt Date: 20111024
  Transmission Date: 20120403
  Serious: Yes (Other)
  Sender: FDA-Public Use
  Company Number: CA-JNJFOC-20111011241

PATIENT
  Sex: Female
  Weight: 81.3 kg

DRUGS (2)
  1. REMICADE [Suspect]
     Indication: CROHN'S DISEASE
     Route: 042
     Dates: start: 20060413
  2. REMICADE [Suspect]
     Dosage: 24-OCT
     Route: 042

REACTIONS (1)
  - HERPES ZOSTER [None]
